FAERS Safety Report 10171549 (Version 1)
Quarter: 2014Q2

REPORT INFORMATION
  Report Type: Spontaneous
  Country: DE (occurrence: None)
  Receive Date: 20140512
  Receipt Date: 20140512
  Transmission Date: 20141212
  Serious: Yes (Other)
  Sender: FDA-Public Use
  Company Number: SYM-2014-20681

PATIENT
  Age: 68 Year
  Sex: Male

DRUGS (2)
  1. PIMECROLIMUS [Suspect]
     Indication: PSORIASIS
  2. ACITRETIN (ACITRETIN) [Concomitant]

REACTIONS (7)
  - Psoriasis [None]
  - Pustular psoriasis [None]
  - Folliculitis [None]
  - Dermatitis acneiform [None]
  - Mycosis fungoides [None]
  - Cutaneous sarcoidosis [None]
  - Acute febrile neutrophilic dermatosis [None]
